FAERS Safety Report 6889379-9 (Version None)
Quarter: 2010Q3

REPORT INFORMATION
  Report Type: 
  Country: None (occurrence: None)
  Receive Date: 20100730
  Receipt Date: 20080214
  Transmission Date: 20110219
  Serious: No
  Sender: FDA-Public Use
  Company Number: US-PFIZER INC-2008015502

PATIENT
  Sex: Male

DRUGS (4)
  1. LIPITOR [Suspect]
     Indication: CARDIAC OPERATION
     Dates: start: 20080101
  2. LIPITOR [Suspect]
     Indication: BLOOD CHOLESTEROL INCREASED
  3. BENAZEPRIL HYDROCHLORIDE [Concomitant]
  4. PLAVIX [Concomitant]

REACTIONS (5)
  - COUGH [None]
  - MUSCLE TIGHTNESS [None]
  - MYALGIA [None]
  - NASOPHARYNGITIS [None]
  - PAIN [None]
